FAERS Safety Report 15248848 (Version 4)
Quarter: 2025Q2

REPORT INFORMATION
  Report Type: Spontaneous
  Country: PT (occurrence: PT)
  Receive Date: 20180807
  Receipt Date: 20250429
  Transmission Date: 20250716
  Serious: Yes (Other)
  Sender: AUROBINDO
  Company Number: PT-AUROBINDO-AUR-APL-2018-039347

PATIENT
  Age: 56 Year
  Sex: Female

DRUGS (15)
  1. CIPROFLOXACIN [Suspect]
     Active Substance: CIPROFLOXACIN
     Indication: Antibiotic prophylaxis
     Route: 042
  2. SULFAN BLUE [Suspect]
     Active Substance: SULFAN BLUE
     Indication: Surgery
     Route: 058
  3. ROCURONIUM [Concomitant]
     Active Substance: ROCURONIUM BROMIDE
     Indication: Anaesthesia
     Route: 065
  4. PROPOFOL [Concomitant]
     Active Substance: PROPOFOL
     Indication: Anaesthesia
     Route: 042
  5. FENTANYL [Concomitant]
     Active Substance: FENTANYL
     Indication: Anaesthesia
     Route: 042
  6. GABAPENTIN [Concomitant]
     Active Substance: GABAPENTIN
     Indication: Product used for unknown indication
     Route: 065
  7. TAMOXIFEN [Concomitant]
     Active Substance: TAMOXIFEN
     Indication: Product used for unknown indication
     Route: 065
  8. DEXAMETHASONE [Concomitant]
     Active Substance: DEXAMETHASONE
     Indication: Anaesthesia
     Route: 042
  9. ESOMEPRAZOLE [Concomitant]
     Active Substance: ESOMEPRAZOLE
     Indication: Product used for unknown indication
     Route: 065
  10. ESCITALOPRAM [Concomitant]
     Active Substance: ESCITALOPRAM OXALATE
     Indication: Product used for unknown indication
     Route: 065
  11. HYDROCORTISONE [Concomitant]
     Active Substance: HYDROCORTISONE
     Indication: Product used for unknown indication
     Route: 042
  12. EPINEPHRINE [Concomitant]
     Active Substance: EPINEPHRINE
     Indication: Product used for unknown indication
     Route: 065
  13. EPINEPHRINE [Concomitant]
     Active Substance: EPINEPHRINE
     Route: 065
  14. CLEMASTINE [Concomitant]
     Active Substance: CLEMASTINE
     Indication: Product used for unknown indication
     Route: 042
  15. RANITIDINE [Concomitant]
     Active Substance: RANITIDINE
     Indication: Product used for unknown indication
     Route: 042

REACTIONS (4)
  - Feeling hot [Recovered/Resolved]
  - Drug hypersensitivity [Recovered/Resolved]
  - Urticaria papular [Recovered/Resolved]
  - Hypotension [Recovered/Resolved]
